FAERS Safety Report 9366295 (Version 1)
Quarter: 2013Q2

REPORT INFORMATION
  Report Type: Spontaneous
  Country: US (occurrence: US)
  Receive Date: 20130625
  Receipt Date: 20130625
  Transmission Date: 20140414
  Serious: No
  Sender: FDA-Public Use
  Company Number: US-GLAXOSMITHKLINE-A0987571A

PATIENT
  Sex: Female

DRUGS (1)
  1. VERAMYST [Suspect]
     Indication: RHINITIS ALLERGIC
     Route: 045

REACTIONS (5)
  - Drug ineffective [Unknown]
  - Rhinorrhoea [Unknown]
  - Scab [Unknown]
  - Product quality issue [Unknown]
  - Nasal discomfort [Unknown]
